FAERS Safety Report 7607125-8 (Version None)
Quarter: 2011Q3

REPORT INFORMATION
  Report Type: 
  Country: None (occurrence: None)
  Receive Date: 20110713
  Receipt Date: 20110629
  Transmission Date: 20111222
  Serious: Yes (Other)
  Sender: FDA-Public Use
  Company Number: US-BAYER-201035120NA

PATIENT
  Age: 35 Year
  Sex: Female
  Weight: 83.9 kg

DRUGS (7)
  1. SYNTHROID [Concomitant]
     Dosage: 0.150 MG, UNK
     Route: 048
  2. SYNTHROID [Concomitant]
     Dosage: 0.175 MG, UNK
     Route: 048
  3. ZOLOFT [Concomitant]
     Dosage: 50 MG, UNK
     Route: 048
  4. PHENTERMINE [Concomitant]
     Indication: MEDICAL DIET
     Dosage: 37.5 MG, UNK
     Route: 048
     Dates: start: 20081001
  5. LEVOTHYROXINE [Concomitant]
     Dosage: 0.175 MG, UNK
     Route: 048
  6. LEVOTHYROXINE [Concomitant]
     Dosage: 0.150 MG, UNK
     Route: 048
  7. YAZ [Suspect]
     Indication: PRODUCT USED FOR UNKNOWN INDICATION
     Dosage: UNK
     Route: 048
     Dates: start: 20080801, end: 20090201

REACTIONS (5)
  - ABDOMINAL PAIN UPPER [None]
  - CHOLECYSTITIS [None]
  - GALLBLADDER DISORDER [None]
  - PAIN [None]
  - CHOLELITHIASIS [None]
